FAERS Safety Report 6668900-X (Version None)
Quarter: 2010Q2

REPORT INFORMATION
  Report Type: 
  Country: None (occurrence: None)
  Receive Date: 20100406
  Receipt Date: 20100326
  Transmission Date: 20101027
  Serious: Yes (Hospitalization)
  Sender: FDA-Public Use
  Company Number: JP-ROCHE-694640

PATIENT
  Age: 60 Year

DRUGS (3)
  1. AVASTIN [Suspect]
     Indication: COLON CANCER
     Route: 041
     Dates: start: 20100304, end: 20100304
  2. XELODA [Suspect]
     Indication: COLON CANCER
     Dosage: DOSE: XELODA 300
     Route: 048
  3. ELPLAT [Suspect]
     Indication: COLON CANCER
     Route: 041

REACTIONS (2)
  - HEPATIC FAILURE [None]
  - RENAL FAILURE [None]
